FAERS Safety Report 11128938 (Version 1)
Quarter: 2015Q2

REPORT INFORMATION
  Report Type: Spontaneous
  Country: US (occurrence: US)
  Receive Date: 20150521
  Receipt Date: 20150521
  Transmission Date: 20150821
  Serious: No
  Sender: FDA-Public Use
  Company Number: US-ELI_LILLY_AND_COMPANY-US201504007766

PATIENT
  Sex: Male

DRUGS (4)
  1. PROPOFOL. [Concomitant]
     Active Substance: PROPOFOL
     Indication: ANAESTHESIA
     Dosage: UNK
     Dates: start: 20150422
  2. CIALIS [Suspect]
     Active Substance: TADALAFIL
     Indication: ERECTILE DYSFUNCTION
     Dosage: 20 MG, PRN
     Route: 065
  3. MIRALAX [Concomitant]
     Active Substance: POLYETHYLENE GLYCOL 3350
     Indication: DIAGNOSTIC PROCEDURE
     Dosage: UNK
     Route: 065
     Dates: start: 20150421
  4. DULCOLAX (BISACODYL) [Concomitant]
     Active Substance: BISACODYL
     Indication: DIAGNOSTIC PROCEDURE
     Dosage: UNK
     Dates: start: 20150421

REACTIONS (1)
  - Sedation [Unknown]

NARRATIVE: CASE EVENT DATE: 20150521
